FAERS Safety Report 7981750-7 (Version None)
Quarter: 2011Q4

REPORT INFORMATION
  Report Type: 
  Country: None (occurrence: None)
  Receive Date: 20111213
  Receipt Date: 20111206
  Transmission Date: 20120403
  Serious: Yes (Other)
  Sender: FDA-Public Use
  Company Number: 1000026053

PATIENT
  Age: 40 Year
  Sex: Female

DRUGS (4)
  1. LOSARTAN (LOSARTAN) (LOSARTAN) [Concomitant]
  2. MULTIVITAMIN (MULTIVITAMIN) (MULTIVITAMIN) [Concomitant]
  3. BYSTOLIC [Suspect]
     Indication: HYPERTENSION
     Dosage: 5 MG (5 MG, 1 IN 1 D), ORAL
     Route: 048
     Dates: start: 20101214
  4. CRESTOR [Concomitant]

REACTIONS (1)
  - POST PROCEDURAL HAEMORRHAGE [None]
